FAERS Safety Report 6998935-9 (Version None)
Quarter: 2010Q3

REPORT INFORMATION
  Report Type: 
  Country: None (occurrence: None)
  Receive Date: 20100920
  Receipt Date: 20070606
  Transmission Date: 20110219
  Serious: Yes (Other)
  Sender: FDA-Public Use
  Company Number: US-ASTRAZENECA-2006UW20860

PATIENT
  Age: 49 Year
  Sex: Male
  Weight: 111.1 kg

DRUGS (11)
  1. SEROQUEL [Suspect]
     Indication: DEPRESSION
     Route: 048
     Dates: start: 20011101, end: 20060601
  2. SEROQUEL [Suspect]
     Dosage: 200MG - 700MG
     Route: 048
     Dates: start: 20020523
  3. CLOZARIL [Concomitant]
  4. BUPROPION HCL [Concomitant]
  5. PAROXETINE HCL [Concomitant]
  6. TRAZODONE HCL [Concomitant]
     Dates: start: 20030821
  7. LISINOPRIL [Concomitant]
     Indication: HYPERTENSION
     Dates: start: 20030821
  8. ATENOLOL [Concomitant]
     Dates: start: 20050528
  9. CLONAZEPAM [Concomitant]
     Route: 048
     Dates: start: 20050528
  10. METHOCARBAMOL [Concomitant]
     Indication: MUSCLE SPASMS
     Route: 048
     Dates: start: 20050712
  11. WELLBUTRIN [Concomitant]
     Dates: start: 20050528

REACTIONS (5)
  - BLOOD GLUCOSE ABNORMAL [None]
  - DIABETES MELLITUS [None]
  - IMPAIRED FASTING GLUCOSE [None]
  - TARDIVE DYSKINESIA [None]
  - TYPE 2 DIABETES MELLITUS [None]
